FAERS Safety Report 7135287-8 (Version None)
Quarter: 2010Q4

REPORT INFORMATION
  Report Type: 
  Country: None (occurrence: None)
  Receive Date: 20101203
  Receipt Date: 20101129
  Transmission Date: 20110411
  Serious: Yes (Death)
  Sender: FDA-Public Use
  Company Number: A0897398A

PATIENT
  Sex: Male
  Weight: 80 kg

DRUGS (3)
  1. SERETIDE [Suspect]
     Indication: CHRONIC OBSTRUCTIVE PULMONARY DISEASE
     Route: 065
     Dates: start: 20081101, end: 20101107
  2. SPIRIVA [Concomitant]
     Dates: start: 20100101, end: 20101107
  3. AEROLIN [Concomitant]
     Dosage: 2PUFF TWICE PER DAY
     Dates: start: 20100501, end: 20101107

REACTIONS (2)
  - CARDIO-RESPIRATORY ARREST [None]
  - OVERDOSE [None]
